FAERS Safety Report 14552687 (Version 3)
Quarter: 2018Q1

REPORT INFORMATION
  Report Type: Report from Study
  Country: FR (occurrence: FR)
  Receive Date: 20180220
  Receipt Date: 20180328
  Transmission Date: 20180509
  Serious: Yes (Other)
  Sender: FDA-Public Use
  Company Number: FR-PFIZER INC-2018067614

PATIENT
  Age: 23 Year
  Sex: Male

DRUGS (1)
  1. VINCRISTINE SULFATE. [Suspect]
     Active Substance: VINCRISTINE SULFATE
     Indication: NON-HODGKIN^S LYMPHOMA STAGE IV
     Dosage: UNK UNK, CYCLIC( CUMILATIVE DOSE 4MG)

REACTIONS (3)
  - Respiratory failure [Recovering/Resolving]
  - Quadriplegia [Recovering/Resolving]
  - Neuropathy peripheral [Recovering/Resolving]
